FAERS Safety Report 7612340-3 (Version None)
Quarter: 2011Q3

REPORT INFORMATION
  Report Type: 
  Country: None (occurrence: None)
  Receive Date: 20110715
  Receipt Date: 20110704
  Transmission Date: 20111222
  Serious: Yes (Hospitalization, Other)
  Sender: FDA-Public Use
  Company Number: AU-AMGEN-AUSSP2011030277

PATIENT
  Age: 79 Year
  Sex: Female

DRUGS (1)
  1. PROLIA [Suspect]
     Indication: OSTEOPOROSIS POSTMENOPAUSAL
     Dosage: 60 MG, UNK
     Route: 058
     Dates: start: 20110305

REACTIONS (9)
  - SECRETION DISCHARGE [None]
  - ALOPECIA [None]
  - HAEMORRHAGE [None]
  - VASCULITIS [None]
  - ERYTHEMA [None]
  - SKIN EXFOLIATION [None]
  - ULCER [None]
  - OEDEMA PERIPHERAL [None]
  - PRURITUS [None]
